FAERS Safety Report 12660581 (Version 2)
Quarter: 2016Q3

REPORT INFORMATION
  Report Type: Spontaneous
  Country: US (occurrence: US)
  Receive Date: 20160817
  Receipt Date: 20160901
  Transmission Date: 20161109
  Serious: No
  Sender: FDA-Public Use
  Company Number: US-RELYPSA-RLY2016000504

PATIENT
  Sex: Female

DRUGS (9)
  1. HUMALOG MIX [Concomitant]
     Active Substance: INSULIN LISPRO
     Dosage: 75/25 KWIKPEN
  2. LEVEMIR [Concomitant]
     Active Substance: INSULIN DETEMIR
  3. ZOLOFT [Concomitant]
     Active Substance: SERTRALINE HYDROCHLORIDE
  4. CRESTOR [Concomitant]
     Active Substance: ROSUVASTATIN CALCIUM
  5. XYZAL [Concomitant]
     Active Substance: LEVOCETIRIZINE DIHYDROCHLORIDE
  6. VELTASSA [Suspect]
     Active Substance: PATIROMER
     Indication: HYPERKALAEMIA
     Dosage: 16.8 G, QD
     Route: 048
     Dates: start: 20160329
  7. LOSARTAN POTASSIUM/HCTZ [Concomitant]
  8. ASPIRIN 81 [Concomitant]
     Active Substance: ASPIRIN
  9. CRANBERRY                          /01512301/ [Concomitant]
     Active Substance: CRANBERRY

REACTIONS (1)
  - Constipation [Not Recovered/Not Resolved]
